FAERS Safety Report 4909861-0 (Version None)
Quarter: 2006Q1

REPORT INFORMATION
  Report Type: 
  Country: None (occurrence: None)
  Receive Date: 20060208
  Receipt Date: 20060126
  Transmission Date: 20060701
  Serious: Yes (Other)
  Sender: FDA-Public Use
  Company Number: 2005154206

PATIENT
  Age: 46 Year
  Sex: Female

DRUGS (6)
  1. NEURONTIN [Suspect]
     Indication: DIABETIC NEUROPATHY
     Dosage: 1800 MG (600 MG, 3 IN 1 D), ORAL
     Route: 048
     Dates: start: 20050701, end: 20050801
  2. LYRICA [Suspect]
     Indication: DIABETIC NEUROPATHY
     Dosage: 300 MG (50 MG, 3 IN 1 D), ORAL
     Route: 048
     Dates: start: 20051001
  3. DIOVAN [Concomitant]
  4. TOPROL-XL [Concomitant]
  5. DICLOFENAC SODIUM [Concomitant]
  6. BENTYL [Concomitant]

REACTIONS (14)
  - ARTHRITIS [None]
  - BURNING SENSATION [None]
  - CONDITION AGGRAVATED [None]
  - DIABETIC NEUROPATHY [None]
  - DIZZINESS [None]
  - DRUG INEFFECTIVE [None]
  - DRUG LEVEL INCREASED [None]
  - INADEQUATE ANALGESIA [None]
  - MULTIPLE MYELOMA [None]
  - OEDEMA PERIPHERAL [None]
  - PROTEIN TOTAL INCREASED [None]
  - SOMNOLENCE [None]
  - VISION BLURRED [None]
  - WEIGHT INCREASED [None]
